FAERS Safety Report 6336136-8 (Version None)
Quarter: 2009Q3

REPORT INFORMATION
  Report Type: 
  Country: None (occurrence: None)
  Receive Date: 20090901
  Receipt Date: 20090828
  Transmission Date: 20100115
  Serious: Yes (Other)
  Sender: FDA-Public Use
  Company Number: US-BAYER-200910534GPV

PATIENT

DRUGS (3)
  1. SORAFENIB [Suspect]
     Indication: NEOPLASM
     Route: 048
  2. CARBOPLATIN [Suspect]
     Indication: NEOPLASM
     Dosage: DOSE WAS LOWERED TO AUC=5
     Route: 065
  3. PEMETREXED [Suspect]
     Indication: NEOPLASM
     Dosage: 500 MG/M2 IN COMBINATION WITH ESCALATING DOSES OF SORAFENIB
     Route: 065

REACTIONS (2)
  - HYPOGLYCAEMIA [None]
  - HYPONATRAEMIA [None]
